FAERS Safety Report 6172846-3 (Version None)
Quarter: 2009Q2

REPORT INFORMATION
  Report Type: 
  Country: None (occurrence: None)
  Receive Date: 20090430
  Receipt Date: 20090422
  Transmission Date: 20091009
  Serious: Yes (Other)
  Sender: FDA-Public Use
  Company Number: US-ROCHE-457900

PATIENT
  Sex: Female

DRUGS (1)
  1. BONIVA [Suspect]
     Indication: OSTEOPOROSIS
     Route: 048
     Dates: start: 20041101

REACTIONS (9)
  - ANKLE FRACTURE [None]
  - ARTHRALGIA [None]
  - BONE DENSITY DECREASED [None]
  - DRUG ADMINISTRATION ERROR [None]
  - FOOT FRACTURE [None]
  - MYALGIA [None]
  - PAIN IN EXTREMITY [None]
  - POST-TRAUMATIC PAIN [None]
  - STRESS FRACTURE [None]
